FAERS Safety Report 10436684 (Version 1)
Quarter: 2014Q3

REPORT INFORMATION
  Report Type: Spontaneous
  Country: US (occurrence: US)
  Receive Date: 20140908
  Receipt Date: 20140908
  Transmission Date: 20150326
  Serious: No
  Sender: FDA-Public Use
  Company Number: US-BRISTOL-MYERS SQUIBB COMPANY-20779617

PATIENT
  Age: 86 Year
  Sex: Female

DRUGS (7)
  1. BUPROPION [Concomitant]
     Active Substance: BUPROPION
  2. COUMADIN [Concomitant]
     Active Substance: WARFARIN SODIUM
  3. DIAZEPAM. [Concomitant]
     Active Substance: DIAZEPAM
  4. ABILIFY [Suspect]
     Active Substance: ARIPIPRAZOLE
     Dosage: DOSE RREDUCED TO:1MG
  5. TRIAMTERENE. [Concomitant]
     Active Substance: TRIAMTERENE
  6. NAMENDA [Concomitant]
     Active Substance: MEMANTINE HYDROCHLORIDE
  7. DONEPEZIL [Concomitant]
     Active Substance: DONEPEZIL

REACTIONS (1)
  - Parkinsonism [Unknown]
